FAERS Safety Report 10468692 (Version 3)
Quarter: 2015Q1

REPORT INFORMATION
  Report Type: Report from Study
  Country: US (occurrence: US)
  Receive Date: 20140922
  Receipt Date: 20150311
  Transmission Date: 20150720
  Serious: Yes (Hospitalization, Other)
  Sender: FDA-Public Use
  Company Number: US-ALEXION PHARMACEUTICALS INC-A201002337

PATIENT

DRUGS (2)
  1. SOLIRIS [Suspect]
     Active Substance: ECULIZUMAB
     Indication: PAROXYSMAL NOCTURNAL HAEMOGLOBINURIA
     Route: 042
  2. SOLIRIS [Suspect]
     Active Substance: ECULIZUMAB
     Dosage: 900 MG, Q2W
     Route: 042

REACTIONS (12)
  - Cardiac disorder [Unknown]
  - Haemoglobinuria [Unknown]
  - Social stay hospitalisation [Unknown]
  - Blood lactate dehydrogenase increased [Unknown]
  - Jaundice [Unknown]
  - Asthenia [Unknown]
  - Myocardial ischaemia [Unknown]
  - Stress [Unknown]
  - Dyspnoea [Unknown]
  - Prostatic specific antigen increased [Unknown]
  - Haemoglobin decreased [Unknown]
  - Fatigue [Unknown]

NARRATIVE: CASE EVENT DATE: 201209
